FAERS Safety Report 12855195 (Version 1)
Quarter: 2016Q4

REPORT INFORMATION
  Report Type: Spontaneous
  Country: US (occurrence: US)
  Receive Date: 20161017
  Receipt Date: 20161017
  Transmission Date: 20170207
  Serious: No
  Sender: FDA-Public Use
  Company Number: US-ASTRAZENECA-2016SF02048

PATIENT
  Age: 615 Month
  Sex: Female
  Weight: 63.5 kg

DRUGS (3)
  1. TRESIBA [Concomitant]
     Active Substance: INSULIN DEGLUDEC
     Indication: TYPE 1 DIABETES MELLITUS
     Dosage: 15.0IU AS REQUIRED
     Route: 058
     Dates: start: 201608
  2. SYMLIN [Suspect]
     Active Substance: PRAMLINTIDE ACETATE
     Indication: BLOOD GLUCOSE ABNORMAL
     Dosage: 1 MG/1.5 ML, 30 MG ONE TO TWO TIMES DAILY
     Route: 058
     Dates: start: 201609
  3. HUMALOG [Concomitant]
     Active Substance: INSULIN LISPRO
     Indication: TYPE 1 DIABETES MELLITUS
     Dosage: FOR MANY MANY YEARS AND IS ON A SLIDING SCALE OF 50 TO 1 CURVED RATIO WITH THE SYMLIN PEN.
     Route: 058

REACTIONS (3)
  - Nausea [Unknown]
  - Drug ineffective [Unknown]
  - Circumstance or information capable of leading to medication error [Not Recovered/Not Resolved]

NARRATIVE: CASE EVENT DATE: 201609
